FAERS Safety Report 16261623 (Version 2)
Quarter: 2020Q2

REPORT INFORMATION
  Report Type: Report from Study
  Country: US (occurrence: US)
  Receive Date: 20190501
  Receipt Date: 20200402
  Transmission Date: 20200713
  Serious: No
  Sender: FDA-Public Use
  Company Number: US-ALEXION PHARMACEUTICALS INC.-A201906327

PATIENT
  Sex: Female

DRUGS (3)
  1. AIRBORNE [Suspect]
     Active Substance: HERBALS\MINERALS\VITAMINS
     Indication: NEPHROLITHIASIS
     Route: 065
  2. SOLIRIS [Suspect]
     Active Substance: ECULIZUMAB
     Dosage: UNK, Q2W
     Route: 065
  3. SOLIRIS [Suspect]
     Active Substance: ECULIZUMAB
     Indication: PAROXYSMAL NOCTURNAL HAEMOGLOBINURIA
     Dosage: UNK
     Route: 065

REACTIONS (7)
  - Blood cholesterol increased [Unknown]
  - Feeling jittery [Unknown]
  - Bronchitis [Recovering/Resolving]
  - Back pain [Unknown]
  - Psychomotor hyperactivity [Unknown]
  - Incorrect product administration duration [Unknown]
  - Headache [Unknown]
